FAERS Safety Report 5693897-9 (Version None)
Quarter: 2008Q2

REPORT INFORMATION
  Report Type: 
  Country: None (occurrence: None)
  Receive Date: 20080403
  Receipt Date: 20080326
  Transmission Date: 20081010
  Serious: Yes (Other)
  Sender: FDA-Public Use
  Company Number: GB-GILEAD-2008-0015892

PATIENT
  Sex: Female

DRUGS (3)
  1. ATRIPLA [Suspect]
  2. TRUVADA [Concomitant]
  3. EFAVIRENZ [Concomitant]

REACTIONS (2)
  - OEDEMA PERIPHERAL [None]
  - PRURITUS [None]
